FAERS Safety Report 6900149-5 (Version None)
Quarter: 2010Q3

REPORT INFORMATION
  Report Type: 
  Country: None (occurrence: None)
  Receive Date: 20100803
  Receipt Date: 20100722
  Transmission Date: 20110219
  Serious: Yes (Other)
  Sender: FDA-Public Use
  Company Number: US-MYLANLABS-2010S1011097

PATIENT
  Age: 17 Year
  Sex: Male

DRUGS (2)
  1. AMNESTEEM [Suspect]
     Indication: ACNE CYSTIC
     Route: 048
     Dates: start: 20100224, end: 20100511
  2. AMNESTEEM [Suspect]
     Indication: SCAR
     Route: 048
     Dates: start: 20100224, end: 20100511

REACTIONS (2)
  - DEPRESSION [None]
  - DRUG EXPOSURE DURING PREGNANCY [None]
